FAERS Safety Report 6151943-2 (Version None)
Quarter: 2009Q2

REPORT INFORMATION
  Report Type: 
  Country: None (occurrence: None)
  Receive Date: 20090410
  Receipt Date: 20090403
  Transmission Date: 20091009
  Serious: No
  Sender: FDA-Public Use
  Company Number: FR-AMGEN-UK336620

PATIENT
  Sex: Female

DRUGS (1)
  1. VECTIBIX [Suspect]
     Indication: COLORECTAL CANCER
     Route: 042

REACTIONS (3)
  - CONJUNCTIVITIS [None]
  - EYE INJURY [None]
  - FACE INJURY [None]
